FAERS Safety Report 5731162-1 (Version None)
Quarter: 2008Q2

REPORT INFORMATION
  Report Type: 
  Country: None (occurrence: None)
  Receive Date: 20080505
  Receipt Date: 20080421
  Transmission Date: 20081010
  Serious: Yes (Hospitalization)
  Sender: FDA-Public Use
  Company Number: 2008BI010735

PATIENT
  Age: 64 Year
  Sex: Male

DRUGS (6)
  1. AVONEX [Suspect]
     Indication: RELAPSING-REMITTING MULTIPLE SCLEROSIS
     Dosage: 30 UG; QW; IM
     Route: 030
     Dates: start: 20071001
  2. NATEGLINIDE [Concomitant]
  3. ASPIRIN [Concomitant]
  4. ADALAT [Concomitant]
  5. DIOVAN [Concomitant]
  6. OMEPRAZOLE [Concomitant]

REACTIONS (3)
  - CEREBELLAR INFARCTION [None]
  - DIZZINESS [None]
  - NAUSEA [None]
